FAERS Safety Report 6729426-8 (Version None)
Quarter: 2010Q2

REPORT INFORMATION
  Report Type: 
  Country: None (occurrence: None)
  Receive Date: 20100518
  Receipt Date: 20100512
  Transmission Date: 20101027
  Serious: Yes (Hospitalization)
  Sender: FDA-Public Use
  Company Number: US-BIOGENIDEC-2009BI034985

PATIENT
  Age: 57 Year
  Sex: Female
  Weight: 102 kg

DRUGS (1)
  1. AVONEX [Suspect]
     Indication: MULTIPLE SCLEROSIS
     Route: 030
     Dates: start: 20010711

REACTIONS (9)
  - CELLULITIS [None]
  - DECUBITUS ULCER [None]
  - DRUG HYPERSENSITIVITY [None]
  - FALL [None]
  - GAIT DISTURBANCE [None]
  - INFECTED SKIN ULCER [None]
  - LIMB INJURY [None]
  - RED MAN SYNDROME [None]
  - UPPER LIMB FRACTURE [None]
